FAERS Safety Report 4319987-0 (Version None)
Quarter: 2004Q1

REPORT INFORMATION
  Report Type: 
  Country: None (occurrence: None)
  Receive Date: 20040315
  Receipt Date: 20040113
  Transmission Date: 20041129
  Serious: No
  Sender: FDA-Public Use
  Company Number: 2004194298US

PATIENT
  Age: 45 Year
  Sex: Female

DRUGS (3)
  1. BEXTRA [Suspect]
     Indication: ARTHRITIS
     Dosage: 10 MG
     Dates: start: 20040112, end: 20040112
  2. ROBAXIN [Concomitant]
  3. EFFEXOR [Concomitant]

REACTIONS (1)
  - ILL-DEFINED DISORDER [None]
